FAERS Safety Report 26087900 (Version 1)
Quarter: 2025Q4

REPORT INFORMATION
  Report Type: Spontaneous
  Country: US (occurrence: US)
  Receive Date: 20251125
  Receipt Date: 20251125
  Transmission Date: 20260118
  Serious: No
  Sender: TELIX PHARMACEUTICALS
  Company Number: US-TLX-2025000028

PATIENT
  Age: 75 Year
  Sex: Male
  Weight: 86.2 kg

DRUGS (1)
  1. ILLUCCIX [Suspect]
     Active Substance: GALLIUM GA-68 GOZETOTIDE
     Indication: Diagnostic procedure
     Dosage: REQUESTED AMOUNT: 5.0 MCI?DISPENSED DOSE: 4.8 MCI ?VOLUME: 6.6 ML?CALIBRATION TIME: 10:30 AM
     Route: 040
     Dates: start: 20250331, end: 20250331

REACTIONS (2)
  - Injection site erythema [Recovered/Resolved]
  - Injection site pain [Recovered/Resolved]

NARRATIVE: CASE EVENT DATE: 20250402
